FAERS Safety Report 7492810-1 (Version None)
Quarter: 2011Q2

REPORT INFORMATION
  Report Type: 
  Country: None (occurrence: None)
  Receive Date: 20110512
  Receipt Date: 20110428
  Transmission Date: 20111010
  Serious: Yes (Hospitalization, Other)
  Sender: FDA-Public Use
  Company Number: 2011SP019498

PATIENT

DRUGS (2)
  1. PEG-INTRON [Suspect]
     Indication: HEPATITIS
     Dates: start: 20070101
  2. REBETOL [Suspect]
     Indication: HEPATITIS
     Dates: start: 20070101

REACTIONS (8)
  - ANAEMIA [None]
  - CLOSTRIDIAL INFECTION [None]
  - VIRAL INFECTION [None]
  - STAPHYLOCOCCAL INFECTION [None]
  - BODY TEMPERATURE INCREASED [None]
  - HEPATIC STEATOSIS [None]
  - HYSTERECTOMY [None]
  - HYPOTHYROIDISM [None]
